FAERS Safety Report 8958914 (Version 1)
Quarter: 2012Q4

REPORT INFORMATION
  Report Type: Report from Study
  Country: US (occurrence: US)
  Receive Date: 20121211
  Receipt Date: 20121211
  Transmission Date: 20130627
  Serious: No
  Sender: FDA-Public Use
  Company Number: US-VERTEX PHARMACEUTICALS INC.-2012-024144

PATIENT
  Age: 38 Year

DRUGS (1)
  1. INCIVEK [Suspect]
     Indication: HEPATITIS C
     Dosage: Dosage Form: Tablet
     Route: 048

REACTIONS (6)
  - Injection site reaction [Unknown]
  - Swelling [Unknown]
  - Dry eye [Unknown]
  - Dry mouth [Unknown]
  - Depression [Unknown]
  - Nausea [Unknown]
